FAERS Safety Report 4615549-6 (Version None)
Quarter: 2005Q1

REPORT INFORMATION
  Report Type: 
  Country: None (occurrence: None)
  Receive Date: 20050322
  Receipt Date: 20050316
  Transmission Date: 20050727
  Serious: Yes (Disabling)
  Sender: FDA-Public Use
  Company Number: US-MERCK-0503USA02807

PATIENT
  Age: 59 Year
  Sex: Female

DRUGS (2)
  1. ZETIA [Suspect]
     Indication: BLOOD CHOLESTEROL INCREASED
     Route: 048
     Dates: start: 20040101, end: 20050101
  2. ZETIA [Suspect]
     Route: 048
     Dates: start: 20050101, end: 20050101

REACTIONS (3)
  - ARTHRALGIA [None]
  - CHEST PAIN [None]
  - NECK PAIN [None]
